FAERS Safety Report 21080260 (Version 2)
Quarter: 2022Q3

REPORT INFORMATION
  Report Type: Spontaneous
  Country: ID (occurrence: ID)
  Receive Date: 20220714
  Receipt Date: 20220819
  Transmission Date: 20221026
  Serious: Yes (Other)
  Sender: FDA-Public Use
  Company Number: ID-PFIZER INC-PV202200019979

PATIENT
  Age: 74 Year

DRUGS (1)
  1. XYNTHA [Suspect]
     Active Substance: ANTIHEMOPHILIC FACTOR, HUMAN RECOMBINANT RESIDUES 743-1636 DELETED
     Dosage: TWICE ADMINISTRATION

REACTIONS (3)
  - Jaundice [Unknown]
  - Ocular icterus [Unknown]
  - Yellow skin [Unknown]
